FAERS Safety Report 7236254-6 (Version None)
Quarter: 2011Q1

REPORT INFORMATION
  Report Type: 
  Country: None (occurrence: None)
  Receive Date: 20110111
  Receipt Date: 20110104
  Transmission Date: 20110831
  Serious: Yes (Hospitalization, Other)
  Sender: FDA-Public Use
  Company Number: 2008-182154-NL

PATIENT
  Age: 46 Year
  Sex: Female
  Weight: 63.5 kg

DRUGS (7)
  1. NUVARING [Suspect]
     Indication: CONTRACEPTION
     Dosage: VAG
     Route: 067
     Dates: start: 20040101, end: 20070325
  2. B-COMPLEX + VITAMIN C [Concomitant]
  3. TESTOSTERONE [Concomitant]
  4. ADVIL [Concomitant]
  5. LAMISIL [Concomitant]
  6. PRASTERONE [Suspect]
     Indication: PRODUCT USED FOR UNKNOWN INDICATION
  7. SUDAFED 12 HOUR [Concomitant]

REACTIONS (25)
  - PARAESTHESIA [None]
  - ROTATOR CUFF REPAIR [None]
  - DEPRESSED LEVEL OF CONSCIOUSNESS [None]
  - PROTEIN TOTAL DECREASED [None]
  - NECK PAIN [None]
  - CONVULSION [None]
  - SUBARACHNOID HAEMORRHAGE [None]
  - ABNORMAL SENSATION IN EYE [None]
  - TACHYCARDIA [None]
  - WEIGHT INCREASED [None]
  - LETHARGY [None]
  - TRANSVERSE SINUS THROMBOSIS [None]
  - TENSION HEADACHE [None]
  - FLATULENCE [None]
  - COLONIC POLYP [None]
  - DYSPEPSIA [None]
  - MITRAL VALVE PROLAPSE [None]
  - DISORIENTATION [None]
  - HYPERHIDROSIS [None]
  - GASTRITIS [None]
  - GASTRIC ULCER [None]
  - NAUSEA [None]
  - CEREBROVASCULAR ACCIDENT [None]
  - FATIGUE [None]
  - STRESS [None]
